FAERS Safety Report 7394555-5 (Version None)
Quarter: 2011Q2

REPORT INFORMATION
  Report Type: 
  Country: None (occurrence: None)
  Receive Date: 20110405
  Receipt Date: 20110404
  Transmission Date: 20111010
  Serious: Yes (Life-Threatening, Hospitalization)
  Sender: FDA-Public Use
  Company Number: PHHO2010DE16120

PATIENT
  Sex: Male
  Weight: 94 kg

DRUGS (10)
  1. FALITHROM [Concomitant]
  2. ENALAPRIL MALEATE [Suspect]
     Indication: CARDIAC FAILURE
     Dosage: UNK
     Route: 048
     Dates: start: 20091222, end: 20100203
  3. LOCOL [Concomitant]
     Indication: HYPERCHOLESTEROLAEMIA
  4. BLINDED NO TREATMENT RECEIVED [Suspect]
     Dosage: CODE NOT BROKEN
     Route: 048
     Dates: start: 20100203, end: 20101013
  5. NEBIVOLOL [Concomitant]
  6. BLINDED ALISKIREN [Suspect]
     Dosage: CODE NOT BROKEN
     Route: 048
     Dates: start: 20100203, end: 20101013
  7. DIGITOXIN TAB [Concomitant]
     Indication: CARDIAC FAILURE
  8. ENALAPRIL MALEATE [Suspect]
     Dosage: CODE NOT BROKEN
     Route: 048
     Dates: start: 20100203, end: 20101013
  9. ALISKIREN [Suspect]
     Indication: CARDIAC FAILURE
     Dosage: UNK
     Dates: start: 20091222, end: 20100203
  10. TORSEMIDE [Concomitant]
     Indication: CARDIAC FAILURE

REACTIONS (4)
  - DRUG INEFFECTIVE [None]
  - DYSPNOEA AT REST [None]
  - PULMONARY OEDEMA [None]
  - CARDIAC FAILURE [None]
